FAERS Safety Report 10674436 (Version 3)
Quarter: 2015Q2

REPORT INFORMATION
  Report Type: Spontaneous
  Country: US (occurrence: US)
  Receive Date: 20141224
  Receipt Date: 20150402
  Transmission Date: 20150821
  Serious: Yes (Disabling, Other)
  Sender: FDA-Public Use
  Company Number: US-009507513-1110USA03464

PATIENT
  Sex: Male

DRUGS (1)
  1. PROPECIA [Suspect]
     Active Substance: FINASTERIDE
     Indication: ALOPECIA
     Dosage: 1 MG, QD
     Route: 048
     Dates: start: 200704, end: 20100722

REACTIONS (19)
  - Blood testosterone decreased [Unknown]
  - Ejaculation disorder [Unknown]
  - Ejaculation failure [Unknown]
  - Nasal disorder [Unknown]
  - Hypogonadism [Unknown]
  - Erectile dysfunction [Unknown]
  - Bipolar disorder [Unknown]
  - Ligament sprain [Unknown]
  - Anxiety [Unknown]
  - Depression [Unknown]
  - Attention deficit/hyperactivity disorder [Unknown]
  - Cognitive disorder [Unknown]
  - Libido decreased [Unknown]
  - Hyperlipidaemia [Unknown]
  - Joint injury [Unknown]
  - Arthropathy [Unknown]
  - Sexual dysfunction [Unknown]
  - Generalised anxiety disorder [Unknown]
  - Hyperlipidaemia [Unknown]

NARRATIVE: CASE EVENT DATE: 200904
